FAERS Safety Report 10613056 (Version 3)
Quarter: 2015Q1

REPORT INFORMATION
  Report Type: Report from Study
  Country: DE (occurrence: DE)
  Receive Date: 20141127
  Receipt Date: 20150324
  Transmission Date: 20150720
  Serious: Yes (Hospitalization)
  Sender: FDA-Public Use
  Company Number: DE-ROCHE-1498366

PATIENT
  Age: 21 Year
  Sex: Female

DRUGS (3)
  1. XOLAIR [Suspect]
     Active Substance: OMALIZUMAB
     Indication: CHRONIC SPONTANEOUS URTICARIA
     Dosage: ONCE
     Route: 058
     Dates: start: 20140916
  2. XOLAIR [Suspect]
     Active Substance: OMALIZUMAB
     Route: 058
     Dates: start: 201411, end: 201411
  3. XOLAIR [Suspect]
     Active Substance: OMALIZUMAB
     Route: 058
     Dates: start: 20141211, end: 20141211

REACTIONS (3)
  - Clostridium difficile colitis [Recovered/Resolved]
  - Maternal exposure during pregnancy [Unknown]
  - Gastrointestinal viral infection [Recovered/Resolved]

NARRATIVE: CASE EVENT DATE: 201410
